FAERS Safety Report 7868332-2 (Version None)
Quarter: 2011Q4

REPORT INFORMATION
  Report Type: 
  Country: None (occurrence: None)
  Receive Date: 20111028
  Receipt Date: 20111021
  Transmission Date: 20120403
  Serious: Yes (Other)
  Sender: FDA-Public Use
  Company Number: US-US-EMD SERONO, INC.-7091436

PATIENT
  Sex: Female

DRUGS (4)
  1. DILTIAZEM HCL [Concomitant]
  2. GABAPENTIN [Concomitant]
  3. REBIF [Suspect]
     Indication: MULTIPLE SCLEROSIS
     Route: 058
     Dates: start: 20040421
  4. OMEPRAZOLE [Concomitant]

REACTIONS (4)
  - DEAFNESS UNILATERAL [None]
  - CYSTOPEXY [None]
  - URINARY TRACT INFECTION [None]
  - BRAIN OPERATION [None]
